FAERS Safety Report 7367735-2 (Version None)
Quarter: 2011Q1

REPORT INFORMATION
  Report Type: 
  Country: None (occurrence: None)
  Receive Date: 20110304
  Receipt Date: 20110225
  Transmission Date: 20110831
  Serious: Yes (Other)
  Sender: FDA-Public Use
  Company Number: 2011SP003575

PATIENT
  Age: 45 Year
  Sex: Female

DRUGS (1)
  1. CERAZETTE (DESOGESTREL) [Suspect]
     Indication: PRODUCT USED FOR UNKNOWN INDICATION
     Dates: start: 20100401, end: 20101201

REACTIONS (1)
  - LABILE HYPERTENSION [None]
